FAERS Safety Report 9167635 (Version 3)
Quarter: 2013Q4

REPORT INFORMATION
  Report Type: Spontaneous
  Country: JP (occurrence: JP)
  Receive Date: 20130318
  Receipt Date: 20131221
  Transmission Date: 20140711
  Serious: Yes (Other)
  Sender: FDA-Public Use
  Company Number: PHHY2013JP025768

PATIENT
  Age: 76 Year
  Sex: Female

DRUGS (2)
  1. ZOMETA [Suspect]
     Indication: METASTASES TO BONE
     Route: 041
     Dates: end: 200709
  2. AREDIA [Suspect]
     Indication: METASTASES TO BONE
     Route: 041
     Dates: start: 200506

REACTIONS (11)
  - Osteonecrosis of jaw [Unknown]
  - Oral discomfort [Unknown]
  - Oral pain [Unknown]
  - Gingival erythema [Unknown]
  - Tooth loss [Unknown]
  - Sinusitis [Unknown]
  - Sinusitis bacterial [Unknown]
  - Streptococcal infection [Unknown]
  - Loose tooth [Unknown]
  - Oral disorder [Unknown]
  - Rhinorrhoea [Unknown]
